FAERS Safety Report 21891932 (Version 1)
Quarter: 2023Q1

REPORT INFORMATION
  Report Type: Spontaneous
  Country: US (occurrence: US)
  Receive Date: 20230120
  Receipt Date: 20230120
  Transmission Date: 20230418
  Serious: Yes (Other)
  Sender: FDA-Public Use
  Company Number: US-PFIZER INC-PV202300011110

PATIENT
  Age: 60 Year
  Sex: Female

DRUGS (1)
  1. METHYLPREDNISOLONE ACETATE [Suspect]
     Active Substance: METHYLPREDNISOLONE ACETATE
     Indication: Status epilepticus
     Dosage: EMPIRICAL PULSE
     Route: 042

REACTIONS (2)
  - Drug ineffective [Unknown]
  - Small intestinal obstruction [Recovered/Resolved]
